FAERS Safety Report 7165938-3 (Version None)
Quarter: 2010Q4

REPORT INFORMATION
  Report Type: 
  Country: None (occurrence: None)
  Receive Date: 20101216
  Receipt Date: 20101207
  Transmission Date: 20110411
  Serious: Yes (Hospitalization)
  Sender: FDA-Public Use
  Company Number: US-BIOGENIDEC-2010BI036668

PATIENT
  Age: 43 Year
  Sex: Male

DRUGS (4)
  1. TYSABRI [Suspect]
     Indication: MULTIPLE SCLEROSIS
     Route: 042
     Dates: end: 20050228
  2. TYSABRI [Suspect]
     Route: 042
     Dates: start: 20080910, end: 20090901
  3. TYSABRI [Suspect]
     Route: 042
     Dates: start: 20100429, end: 20100706
  4. AVONEX [Concomitant]
     Indication: MULTIPLE SCLEROSIS
     Dates: start: 20050702

REACTIONS (3)
  - APHASIA [None]
  - MULTIPLE SCLEROSIS [None]
  - URINARY TRACT INFECTION [None]
